FAERS Safety Report 16707724 (Version 2)
Quarter: 2019Q3

REPORT INFORMATION
  Report Type: Spontaneous
  Country: GB (occurrence: GB)
  Receive Date: 20190815
  Receipt Date: 20190827
  Transmission Date: 20191004
  Serious: Yes (Death, Other)
  Sender: FDA-Public Use
  Company Number: GB-SHIRE-GB201926034

PATIENT

DRUGS (1)
  1. HUMAN NORMAL IMMUNOGLOBULIN [Suspect]
     Active Substance: HUMAN IMMUNOGLOBULIN G
     Indication: PANCYTOPENIA
     Dosage: 1 MILLIGRAM/KILOGRAM
     Route: 042

REACTIONS (6)
  - Pulmonary haemorrhage [Fatal]
  - Acute respiratory distress syndrome [Fatal]
  - Transfusion-related acute lung injury [Fatal]
  - Immune thrombocytopenic purpura [Fatal]
  - Intentional product use issue [Unknown]
  - Fluid overload [Fatal]
